FAERS Safety Report 13174193 (Version 1)
Quarter: 2017Q1

REPORT INFORMATION
  Report Type: Spontaneous
  Country: US (occurrence: US)
  Receive Date: 20170201
  Receipt Date: 20170201
  Transmission Date: 20170428
  Serious: No
  Sender: FDA-Public Use
  Company Number: US-PFIZER INC-2017040954

PATIENT
  Sex: Female

DRUGS (1)
  1. XALKORI [Suspect]
     Active Substance: CRIZOTINIB
     Indication: GESTATIONAL TROPHOBLASTIC TUMOUR
     Dosage: UNK

REACTIONS (2)
  - Neoplasm progression [Unknown]
  - Product use issue [Unknown]
